FAERS Safety Report 16136859 (Version 1)
Quarter: 2019Q1

REPORT INFORMATION
  Report Type: Spontaneous
  Country: FR (occurrence: FR)
  Receive Date: 20190329
  Receipt Date: 20190329
  Transmission Date: 20190418
  Serious: Yes (Hospitalization)
  Sender: FDA-Public Use
  Company Number: PHHY2019FR068784

PATIENT
  Age: 58 Year
  Sex: Male
  Weight: 63 kg

DRUGS (3)
  1. KARDEGIC [Suspect]
     Active Substance: ASPIRIN DL-LYSINE
     Indication: THROMBOSIS PROPHYLAXIS
     Dosage: UNK
     Route: 048
  2. EVEROLIMUS. [Suspect]
     Active Substance: EVEROLIMUS
     Indication: LIVER TRANSPLANT
     Dosage: UNK
     Route: 048
  3. CELLCEPT [Suspect]
     Active Substance: MYCOPHENOLATE MOFETIL\MYCOPHENOLATE MOFETIL HYDROCHLORIDE
     Indication: LIVER TRANSPLANT
     Dosage: UNK
     Route: 048

REACTIONS (3)
  - Interstitial lung disease [Not Recovered/Not Resolved]
  - Lung infection [Recovering/Resolving]
  - Haemoptysis [Recovered/Resolved]

NARRATIVE: CASE EVENT DATE: 201902
